FAERS Safety Report 16962340 (Version 1)
Quarter: 2019Q4

REPORT INFORMATION
  Report Type: Spontaneous
  Country: US (occurrence: US)
  Receive Date: 20191025
  Receipt Date: 20191025
  Transmission Date: 20200122
  Serious: Yes (Other)
  Sender: FDA-Public Use
  Company Number: US-NOVOPROD-649955

PATIENT
  Age: 67 Year
  Sex: Female

DRUGS (1)
  1. VAGIFEM [Suspect]
     Active Substance: ESTRADIOL
     Indication: PRODUCT USED FOR UNKNOWN INDICATION
     Dosage: 10 ?G
     Route: 067
     Dates: start: 2015

REACTIONS (5)
  - Therapeutic response decreased [Unknown]
  - Vulvovaginal dryness [Not Recovered/Not Resolved]
  - Expulsion of medication [Unknown]
  - Device breakage [Unknown]
  - Drug ineffective [Unknown]

NARRATIVE: CASE EVENT DATE: 201808
